FAERS Safety Report 6595278-2 (Version None)
Quarter: 2010Q1

REPORT INFORMATION
  Report Type: 
  Country: None (occurrence: None)
  Receive Date: 20100212
  Receipt Date: 20100128
  Transmission Date: 20100710
  Serious: Yes (Hospitalization)
  Sender: FDA-Public Use
  Company Number: KV200900427

PATIENT
  Age: 58 Year
  Sex: Female
  Weight: 62.6 kg

DRUGS (10)
  1. MORPHINE SULFATE [Suspect]
     Indication: PAIN
     Dosage: 60 MG, BID, ORAL
     Route: 048
     Dates: start: 20080101, end: 20080501
  2. VICODIN [Concomitant]
  3. PREMARIN [Concomitant]
  4. NAPROXEN [Concomitant]
  5. LIPITOR [Concomitant]
  6. AMLODIPINE [Concomitant]
  7. CLONIDINE [Concomitant]
  8. COREG [Concomitant]
  9. XANAX [Concomitant]
  10. PROZAC [Concomitant]

REACTIONS (30)
  - ABNORMAL BEHAVIOUR [None]
  - ACCIDENTAL EXPOSURE [None]
  - ACCIDENTAL OVERDOSE [None]
  - ACUTE STRESS DISORDER [None]
  - ALTERED STATE OF CONSCIOUSNESS [None]
  - ANXIETY DISORDER [None]
  - BRONCHITIS [None]
  - CHEST DISCOMFORT [None]
  - CHEST PAIN [None]
  - CONFUSIONAL STATE [None]
  - DEATH OF RELATIVE [None]
  - DEHYDRATION [None]
  - DEPRESSION [None]
  - DYSARTHRIA [None]
  - DYSPNOEA [None]
  - HEADACHE [None]
  - HYPERSOMNIA [None]
  - HYPOTHYROIDISM [None]
  - LETHARGY [None]
  - LOSS OF CONSCIOUSNESS [None]
  - NAUSEA [None]
  - NEPHROLITHIASIS [None]
  - NIGHT SWEATS [None]
  - OEDEMA PERIPHERAL [None]
  - PAIN [None]
  - SINUS BRADYCARDIA [None]
  - SOMNOLENCE [None]
  - SUICIDE ATTEMPT [None]
  - UNRESPONSIVE TO STIMULI [None]
  - WRONG DRUG ADMINISTERED [None]
